FAERS Safety Report 4844891-9 (Version None)
Quarter: 2005Q4

REPORT INFORMATION
  Report Type: 
  Country: None (occurrence: None)
  Receive Date: 20051201
  Receipt Date: 20051201
  Transmission Date: 20060501
  Serious: Yes (Hospitalization)
  Sender: FDA-Public Use
  Company Number: None

PATIENT
  Sex: Male
  Weight: 93 kg

DRUGS (4)
  1. QUETIAPINE FUMARATE [Suspect]
     Indication: INSOMNIA
     Dosage: 75 MG AT BEDTIME PO
     Route: 048
  2. TIAGABINE HCL [Concomitant]
  3. SELEGILINE HCL [Concomitant]
  4. HYDROCODONE/ACETAMINOPHEN [Concomitant]

REACTIONS (4)
  - ABNORMAL BEHAVIOUR [None]
  - AGGRESSION [None]
  - FALL [None]
  - PSYCHOTIC DISORDER [None]
